FAERS Safety Report 20063851 (Version 1)
Quarter: 2021Q4

REPORT INFORMATION
  Report Type: Spontaneous
  Country: US (occurrence: US)
  Receive Date: 20211112
  Receipt Date: 20211112
  Transmission Date: 20220303
  Serious: No
  Sender: FDA-Public Use
  Company Number: US-ORGANON-O2110USA002439

PATIENT
  Age: 11 Year
  Sex: Male

DRUGS (6)
  1. DULERA [Suspect]
     Active Substance: FORMOTEROL FUMARATE DIHYDRATE\MOMETASONE FUROATE
     Indication: Chest pain
     Dosage: UNK UNK, Q12H
  2. ALBUTEROL SULFATE [Concomitant]
     Active Substance: ALBUTEROL SULFATE
     Dosage: UNK, Q4H
  3. DORNASE ALFA [Concomitant]
     Active Substance: DORNASE ALFA
     Dosage: UNK, Q12H
  4. IRINOTECAN HYDROCHLORIDE [Concomitant]
     Active Substance: IRINOTECAN HYDROCHLORIDE
     Dosage: UNK, Q4H
  5. CEFTRIAXONE [Concomitant]
     Active Substance: CEFTRIAXONE
  6. AZITHROMYCIN [Concomitant]
     Active Substance: AZITHROMYCIN

REACTIONS (2)
  - Product use issue [Unknown]
  - Product use in unapproved indication [Unknown]
